FAERS Safety Report 15897501 (Version 9)
Quarter: 2019Q2

REPORT INFORMATION
  Report Type: Spontaneous
  Country: KR (occurrence: KR)
  Receive Date: 20190131
  Receipt Date: 20190624
  Transmission Date: 20190711
  Serious: Yes (Other)
  Sender: FDA-Public Use
  Company Number: KR-009507513-1901KOR006473

PATIENT
  Sex: Female

DRUGS (27)
  1. KEYTRUDA [Suspect]
     Active Substance: PEMBROLIZUMAB
     Dosage: QUANTITY: 2, DAYS: 1
     Dates: start: 20190405, end: 20190405
  2. SODIUM CHLORIDE. [Concomitant]
     Active Substance: SODIUM CHLORIDE
     Dosage: 50 ML, QUANTITY: 1, DAYS: 1
     Dates: start: 20190122
  3. SODIUM CHLORIDE. [Concomitant]
     Active Substance: SODIUM CHLORIDE
     Dosage: QUANTITY: 1, DAYS: 1
     Dates: start: 20190315
  4. SODIUM CHLORIDE. [Concomitant]
     Active Substance: SODIUM CHLORIDE
     Dosage: 50 ML, QUANTITY: 1, DAYS: 1
     Dates: start: 20190426, end: 20190426
  5. SODIUM CHLORIDE. [Concomitant]
     Active Substance: SODIUM CHLORIDE
     Dosage: 500 ML, QUANTITY: 1, DAYS: 1
     Dates: start: 20190122
  6. SODIUM CHLORIDE. [Concomitant]
     Active Substance: SODIUM CHLORIDE
     Dosage: 50 ML, QUANTITY: 1, DAYS: 1
     Dates: start: 20190405, end: 20190405
  7. HEPARIN SODIUM. [Concomitant]
     Active Substance: HEPARIN SODIUM
     Dosage: QUANTITY: 1, DAYS: 1
     Dates: start: 20190102
  8. KEYTRUDA [Suspect]
     Active Substance: PEMBROLIZUMAB
     Dosage: QUANTITY: 2, DAYS: 1
     Dates: start: 20190607, end: 20190607
  9. SODIUM CHLORIDE. [Concomitant]
     Active Substance: SODIUM CHLORIDE
     Dosage: QUANITIY: 1, DAYS: 1
     Dates: start: 20190607
  10. SODIUM CHLORIDE. [Concomitant]
     Active Substance: SODIUM CHLORIDE
     Dosage: 500 ML, QUANTITY: 1, DAYS: 1
     Dates: start: 20190102
  11. SODIUM CHLORIDE. [Concomitant]
     Active Substance: SODIUM CHLORIDE
     Dosage: 50 ML, QUANTITY: 1, DAYS: 1
     Dates: start: 20190315
  12. KEYTRUDA [Suspect]
     Active Substance: PEMBROLIZUMAB
     Dosage: QUANTITY: 2, DAYS: 1
     Dates: start: 20190122, end: 20190122
  13. SODIUM CHLORIDE. [Concomitant]
     Active Substance: SODIUM CHLORIDE
     Dosage: QUANTITY: 1, DAYS: 1
     Dates: start: 20190405, end: 20190405
  14. PANORIN [Concomitant]
     Dosage: QUANTITY: 4, DAYS: 1
     Dates: start: 20190122
  15. HEPARIN SODIUM. [Concomitant]
     Active Substance: HEPARIN SODIUM
     Dosage: 3 ML, QUANTITY: 1, DAYS: 1
     Dates: start: 20190405
  16. SODIUM CHLORIDE. [Concomitant]
     Active Substance: SODIUM CHLORIDE
     Dosage: 50 ML, QUANITIY: 1, DAYS: 1
     Dates: start: 20190607
  17. KEYTRUDA [Suspect]
     Active Substance: PEMBROLIZUMAB
     Dosage: QUANTITY: 2, DAYS: 1
     Dates: start: 20190315, end: 20190315
  18. KEYTRUDA [Suspect]
     Active Substance: PEMBROLIZUMAB
     Dosage: QUANTITY: 2, DAYS: 1
     Dates: start: 20190426, end: 20190426
  19. KEYTRUDA [Suspect]
     Active Substance: PEMBROLIZUMAB
     Dosage: QUANTITY: 2, DAYS: 1
     Dates: start: 20190517, end: 20190517
  20. SODIUM CHLORIDE. [Concomitant]
     Active Substance: SODIUM CHLORIDE
     Dosage: 50 ML, QUANTITY: 1, DAYS: 1
     Dates: start: 20190102
  21. SODIUM CHLORIDE. [Concomitant]
     Active Substance: SODIUM CHLORIDE
     Dosage: 50 ML, QUANTITY: 1, DAYS: 1
     Dates: start: 20190215, end: 20190215
  22. SODIUM CHLORIDE. [Concomitant]
     Active Substance: SODIUM CHLORIDE
     Dosage: 50 ML, QUANITIY: 1, DAYS: 1
     Dates: start: 20190517
  23. HEPARIN SODIUM. [Concomitant]
     Active Substance: HEPARIN SODIUM
     Dosage: 3 ML, QUANTITY: 1, DAYS: 1
     Dates: start: 20190215
  24. KEYTRUDA [Suspect]
     Active Substance: PEMBROLIZUMAB
     Indication: BILE DUCT CANCER
     Dosage: 100 MG, QUANTITY: 2, DAYS: 1
     Dates: start: 20190102, end: 20190102
  25. KEYTRUDA [Suspect]
     Active Substance: PEMBROLIZUMAB
     Dosage: QUANTITY: 2, DAYS: 1
     Dates: start: 20190215, end: 20190215
  26. PANORIN [Concomitant]
     Dosage: QUANTITY: 6, DAYS: 1
     Dates: start: 20190102
  27. HEPARIN SODIUM. [Concomitant]
     Active Substance: HEPARIN SODIUM
     Dosage: 100 INTERNATIONAL UNIT, QUANTITY: 1, DAYS: 1
     Dates: start: 20190607

REACTIONS (3)
  - Inappropriate schedule of product administration [Unknown]
  - Product use in unapproved indication [Unknown]
  - Ascites [Unknown]

NARRATIVE: CASE EVENT DATE: 201901
